FAERS Safety Report 10083372 (Version 1)
Quarter: 2014Q2

REPORT INFORMATION
  Report Type: Spontaneous
  Country: US (occurrence: None)
  Receive Date: 20140415
  Receipt Date: 20140415
  Transmission Date: 20141212
  Serious: Yes (Life-Threatening, Hospitalization, Disabling)
  Sender: FDA-Public Use
  Company Number: None

PATIENT
  Age: 58 Year
  Sex: Female

DRUGS (1)
  1. METHOTREXATE [Suspect]
     Indication: ARTHRITIS
     Route: 048

REACTIONS (6)
  - Dyspnoea [None]
  - Lung disorder [None]
  - Wheezing [None]
  - Impaired work ability [None]
  - Impaired self-care [None]
  - Fatigue [None]
